FAERS Safety Report 19801639 (Version 3)
Quarter: 2021Q3

REPORT INFORMATION
  Report Type: Spontaneous
  Country: FR (occurrence: FR)
  Receive Date: 20210907
  Receipt Date: 20210927
  Transmission Date: 20211014
  Serious: No
  Sender: FDA-Public Use
  Company Number: FR-JNJFOC-20210845088

PATIENT
  Sex: Male

DRUGS (6)
  1. TREVICTA [Suspect]
     Active Substance: PALIPERIDONE PALMITATE
     Indication: PRODUCT USED FOR UNKNOWN INDICATION
     Dosage: STRENGTH: 525.00 MG
     Route: 030
  2. TREVICTA [Suspect]
     Active Substance: PALIPERIDONE PALMITATE
  3. TREVICTA [Suspect]
     Active Substance: PALIPERIDONE PALMITATE
  4. TREVICTA [Suspect]
     Active Substance: PALIPERIDONE PALMITATE
  5. TREVICTA [Suspect]
     Active Substance: PALIPERIDONE PALMITATE
  6. TREVICTA [Suspect]
     Active Substance: PALIPERIDONE PALMITATE

REACTIONS (2)
  - Underdose [Unknown]
  - Device occlusion [Unknown]

NARRATIVE: CASE EVENT DATE: 20210820
